FAERS Safety Report 17195679 (Version 3)
Quarter: 2020Q4

REPORT INFORMATION
  Report Type: Spontaneous
  Country: US (occurrence: US)
  Receive Date: 20191224
  Receipt Date: 20201210
  Transmission Date: 20210113
  Serious: No
  Sender: FDA-Public Use
  Company Number: US-TEVA-2019-US-1157254

PATIENT
  Age: 55 Year
  Sex: Female

DRUGS (14)
  1. CALCIFEROL [Concomitant]
  2. TRAZODONE [Concomitant]
     Active Substance: TRAZODONE HYDROCHLORIDE
  3. ESTRADIOL. [Concomitant]
     Active Substance: ESTRADIOL
  4. LISINOPRIL. [Concomitant]
     Active Substance: LISINOPRIL
  5. COPAXONE [Suspect]
     Active Substance: GLATIRAMER ACETATE
     Indication: MULTIPLE SCLEROSIS
     Dosage: COPAXONE 40MG THRICE A WEEK
     Route: 058
     Dates: start: 20160202
  6. BENZONATATE. [Concomitant]
     Active Substance: BENZONATATE
  7. CALCIUM 800 [Concomitant]
  8. CLOTRIMAZOLE. [Concomitant]
     Active Substance: CLOTRIMAZOLE
  9. MULTIVITAMIN [Concomitant]
     Active Substance: VITAMINS
  10. ASPIRIN  81 [Concomitant]
     Active Substance: ASPIRIN
  11. CLOTRIM/BETA [Concomitant]
  12. SPRYCEL [Concomitant]
     Active Substance: DASATINIB
  13. GLIMEPIRIDE. [Concomitant]
     Active Substance: GLIMEPIRIDE
  14. METFORMIN [Concomitant]
     Active Substance: METFORMIN HYDROCHLORIDE

REACTIONS (5)
  - Rash macular [Not Recovered/Not Resolved]
  - Product dose omission issue [Unknown]
  - COVID-19 [Not Recovered/Not Resolved]
  - COVID-19 [Not Recovered/Not Resolved]
  - Rash [Not Recovered/Not Resolved]

NARRATIVE: CASE EVENT DATE: 20201203
